FAERS Safety Report 4631071-5 (Version None)
Quarter: 2005Q2

REPORT INFORMATION
  Report Type: 
  Country: None (occurrence: None)
  Receive Date: 20050408
  Receipt Date: 20050330
  Transmission Date: 20051028
  Serious: Yes (Hospitalization, Other)
  Sender: FDA-Public Use
  Company Number: US-ABBOTT-05P-163-0295543-00

PATIENT
  Sex: Female
  Weight: 44.946 kg

DRUGS (6)
  1. HUMIRA [Suspect]
     Indication: RHEUMATOID ARTHRITIS
     Route: 058
     Dates: start: 20040901
  2. METHOTREXATE [Concomitant]
     Indication: RHEUMATOID ARTHRITIS
     Route: 048
     Dates: start: 20040901
  3. FOLIC ACID [Concomitant]
     Indication: RHEUMATOID ARTHRITIS
     Route: 048
     Dates: start: 20040901
  4. VICODIN [Concomitant]
     Indication: RHEUMATOID ARTHRITIS
     Route: 048
  5. ESTROGENS [Concomitant]
     Indication: HOT FLUSH
     Route: 048
  6. CYANOCOBALAMIN [Concomitant]
     Indication: PROPHYLAXIS
     Route: 048

REACTIONS (3)
  - ARTHRALGIA [None]
  - DYSURIA [None]
  - NECK PAIN [None]
